FAERS Safety Report 5546860-2 (Version None)
Quarter: 2007Q4

REPORT INFORMATION
  Report Type: 
  Country: None (occurrence: None)
  Receive Date: 20071211
  Receipt Date: 20070904
  Transmission Date: 20080405
  Serious: Yes (Other)
  Sender: FDA-Public Use
  Company Number: US-PFIZER INC-2007074464

PATIENT
  Sex: Female
  Weight: 73.5 kg

DRUGS (4)
  1. CHANTIX [Suspect]
     Indication: SMOKING CESSATION THERAPY
     Dosage: FREQ:DAILY
     Dates: start: 20070801, end: 20070904
  2. PROGESTERONE [Concomitant]
  3. HYDROCORTISONE [Concomitant]
  4. LIOTHYRONINE [Concomitant]

REACTIONS (3)
  - GAIT DISTURBANCE [None]
  - HYPOAESTHESIA [None]
  - NAUSEA [None]
